FAERS Safety Report 7797448-4 (Version None)
Quarter: 2011Q4

REPORT INFORMATION
  Report Type: 
  Country: None (occurrence: None)
  Receive Date: 20111005
  Receipt Date: 20111003
  Transmission Date: 20120403
  Serious: Yes (Hospitalization, Other)
  Sender: FDA-Public Use
  Company Number: GB-PFIZER INC-2011186752

PATIENT
  Age: 41 Year
  Sex: Male

DRUGS (3)
  1. FLUCLOXACILLIN [Concomitant]
     Indication: LOWER RESPIRATORY TRACT INFECTION
     Dosage: 500 MG, 4X/DAY
     Route: 048
     Dates: start: 20110622, end: 20110629
  2. VARENICLINE TARTRATE [Suspect]
     Indication: SMOKING CESSATION THERAPY
     Dosage: 1 MG, 2X/DAY
     Route: 048
     Dates: start: 20110624, end: 20110717
  3. SALBUTAMOL [Concomitant]
     Indication: LOWER RESPIRATORY TRACT INFECTION
     Dosage: UNK
     Route: 055
     Dates: start: 20110622

REACTIONS (4)
  - PALPITATIONS [None]
  - WITHDRAWAL SYNDROME [None]
  - CHEST PAIN [None]
  - BLOOD PRESSURE ABNORMAL [None]
